FAERS Safety Report 18278029 (Version 1)
Quarter: 2020Q3

REPORT INFORMATION
  Report Type: Spontaneous
  Country: US (occurrence: US)
  Receive Date: 20200917
  Receipt Date: 20200917
  Transmission Date: 20201103
  Serious: No
  Sender: FDA-Public Use
  Company Number: US-CIRCASSIA PHARMACEUTICALS INC-2019US012746

PATIENT
  Age: 73 Year
  Sex: Female
  Weight: 85.3 kg

DRUGS (1)
  1. TUDORZA PRESSAIR [Suspect]
     Active Substance: ACLIDINIUM BROMIDE
     Indication: CHRONIC OBSTRUCTIVE PULMONARY DISEASE
     Dosage: 400 UG, BID
     Route: 055

REACTIONS (7)
  - Gait disturbance [Unknown]
  - Asthenia [Unknown]
  - Device malfunction [Unknown]
  - Ankle fracture [Unknown]
  - Dyspnoea [Unknown]
  - Product dose omission issue [Unknown]
  - Fall [Unknown]

NARRATIVE: CASE EVENT DATE: 201811
